FAERS Safety Report 4860534-2 (Version None)
Quarter: 2005Q4

REPORT INFORMATION
  Report Type: 
  Country: None (occurrence: None)
  Receive Date: 20051216
  Receipt Date: 20051207
  Transmission Date: 20060501
  Serious: No
  Sender: FDA-Public Use
  Company Number: 2005BI018954

PATIENT
  Sex: Female

DRUGS (1)
  1. AVONEX [Suspect]

REACTIONS (1)
  - OPTIC NEURITIS [None]
